FAERS Safety Report 24777015 (Version 1)
Quarter: 2024Q4

REPORT INFORMATION
  Report Type: Report from Study
  Country: US (occurrence: US)
  Receive Date: 20241226
  Receipt Date: 20241226
  Transmission Date: 20250115
  Serious: Yes (Other)
  Sender: RANBAXY
  Company Number: US-SUN PHARMACEUTICAL INDUSTRIES LTD-2024R1-486265

PATIENT
  Age: 9 Year
  Sex: Male

DRUGS (3)
  1. DEXAMETHASONE [Suspect]
     Active Substance: DEXAMETHASONE
     Indication: Adrenoleukodystrophy
     Dosage: 10 MILLIGRAM, DAILY
     Route: 048
  2. BEVACIZUMAB [Suspect]
     Active Substance: BEVACIZUMAB
     Indication: Adrenoleukodystrophy
     Dosage: 10 MILLIGRAM/SQ. METER, EVERY 2 WEEKS
     Route: 042
  3. RUXOLITINIB [Suspect]
     Active Substance: RUXOLITINIB
     Indication: Adrenoleukodystrophy
     Dosage: 10 MILLIGRAM, DAILY
     Route: 048

REACTIONS (2)
  - Disease progression [Unknown]
  - Off label use [Unknown]
